FAERS Safety Report 21419946 (Version 5)
Quarter: 2024Q1

REPORT INFORMATION
  Report Type: Report from Study
  Country: US (occurrence: US)
  Receive Date: 20221007
  Receipt Date: 20240202
  Transmission Date: 20240409
  Serious: No
  Sender: FDA-Public Use
  Company Number: US-ACADIA PHARMACEUTICALS INC.-ACA-2022-PIM-003092

PATIENT
  Age: 77 Year
  Sex: Female

DRUGS (38)
  1. NUPLAZID [Suspect]
     Active Substance: PIMAVANSERIN TARTRATE
     Indication: Parkinson^s disease psychosis
     Dosage: 34 MILLIGRAM, QD
     Route: 048
     Dates: start: 20220906
  2. NUPLAZID [Suspect]
     Active Substance: PIMAVANSERIN TARTRATE
     Indication: Delusion
     Dosage: 34 MILLIGRAM, QD
     Route: 048
     Dates: start: 20220911
  3. NUPLAZID [Suspect]
     Active Substance: PIMAVANSERIN TARTRATE
     Indication: Hallucination
     Dosage: 34 MILLIGRAM, QD
     Route: 065
  4. NUPLAZID [Suspect]
     Active Substance: PIMAVANSERIN TARTRATE
     Indication: Parkinson^s disease
     Dosage: 34 MILLIGRAM, QD
     Route: 048
     Dates: start: 20231124
  5. NUPLAZID [Suspect]
     Active Substance: PIMAVANSERIN TARTRATE
     Dosage: 34 MILLIGRAM, QD
     Route: 048
     Dates: start: 202312
  6. ELIQUIS [Concomitant]
     Active Substance: APIXABAN
     Dosage: 5 MILLIGRAM, BID
     Route: 048
     Dates: start: 20220831
  7. MACRODANTIN [Concomitant]
     Active Substance: NITROFURANTOIN
     Indication: Infection
     Dosage: 50 MILLIGRAM, QD
     Route: 048
     Dates: start: 20220816
  8. ZOFRAN [Concomitant]
     Active Substance: ONDANSETRON HYDROCHLORIDE
     Indication: Nausea
     Dosage: 4 MILLIGRAM, QD, AS NEEDED
     Route: 048
     Dates: start: 20220811
  9. D-MANNOSE [Concomitant]
     Dosage: 1000 MILLIGRAM, QD
     Route: 048
  10. FISH OIL\OMEGA-3 FATTY ACIDS [Concomitant]
     Active Substance: FISH OIL\OMEGA-3 FATTY ACIDS
     Dosage: 880 MILLIGRAM, QD
     Route: 048
     Dates: start: 20220808
  11. CARDIOPLUS [OLMESARTAN MEDOXOMIL] [Concomitant]
     Dosage: 2 CAPSULE AT LUNCH
     Route: 048
     Dates: start: 20220808
  12. ESTRACE [Concomitant]
     Active Substance: ESTRADIOL
     Dosage: 0.1 MG/GM, USE A PEA SIZED AMOUNT EVERY OTHER NIGHT (MON-WED-FRI)
     Route: 067
     Dates: start: 20220715
  13. ULTRAM [Concomitant]
     Active Substance: TRAMADOL HYDROCHLORIDE
     Indication: Pain
     Dosage: 50 MILLIGRAM, 1 TABLET EVERY 6 HOURS AS NEEDED
     Route: 048
     Dates: start: 20220621
  14. NOVOLOG [Concomitant]
     Active Substance: INSULIN ASPART
     Dosage: 100 UNITS/ML
     Dates: start: 20220608
  15. SINEMET [Concomitant]
     Active Substance: CARBIDOPA\LEVODOPA
     Dosage: 25-100 MG, TAKE 2 TABLETS 4 TIMES DAILY (AT 6 AM, 10 AM, 2 PM AND 6 PM)
     Route: 048
     Dates: start: 20220511
  16. MIRAPEX [Concomitant]
     Active Substance: PRAMIPEXOLE DIHYDROCHLORIDE
     Dosage: 0.75 MG, TAKE 1 TABLET IN THE MORNING AND 1 TABLET AT SUPPER, TAKE 2 TABLETS AT BEDTIME
     Dates: start: 20220511
  17. LANTUS [Concomitant]
     Active Substance: INSULIN GLARGINE
     Dosage: INJECT 20 UNITS AS NEEDED
     Route: 058
     Dates: start: 20220423
  18. COZAAR [Concomitant]
     Active Substance: LOSARTAN POTASSIUM
     Dosage: 25 MILLIGRAM, TAKE 1 TABLET EVERY MORNING ANG 0.5 MG TABLETS EVERY EVENING
     Route: 048
     Dates: start: 20220410
  19. LOPRESSOR [Concomitant]
     Active Substance: METOPROLOL TARTRATE
     Dosage: 50 MILLIGRAM, BID
     Route: 048
     Dates: start: 20220410
  20. TYLENOL [Concomitant]
     Active Substance: ACETAMINOPHEN
     Dosage: 500 MILLIGRAM, 2 TABLETS FOUR TIMES A DAY
     Route: 048
     Dates: start: 20220404
  21. METROCREAM [Concomitant]
     Active Substance: METRONIDAZOLE
     Indication: Rosacea
     Dosage: BID 0.75 %
     Route: 061
     Dates: start: 20220316
  22. BETAMETHASONE DIPROPIONATE [Concomitant]
     Active Substance: BETAMETHASONE DIPROPIONATE
     Dosage: BID
     Route: 061
     Dates: start: 20220307
  23. HYDRODIURIL [Concomitant]
     Active Substance: HYDROCHLOROTHIAZIDE
     Dosage: 25 MILLIGRAM, QD
     Route: 048
     Dates: start: 20220307
  24. CRESTOR [Concomitant]
     Active Substance: ROSUVASTATIN CALCIUM
     Dosage: 10 MILLIGRAM, QD
     Dates: start: 20220307
  25. SYNTHROID [Concomitant]
     Active Substance: LEVOTHYROXINE SODIUM
     Dosage: 112 MCG
     Route: 048
     Dates: start: 20220307
  26. NITROSTAT [Concomitant]
     Active Substance: NITROGLYCERIN
     Dosage: 0.4 MG, 1 TABLET AS NEEDED
     Dates: start: 20220307
  27. BAQSIMI [Concomitant]
     Active Substance: GLUCAGON
     Indication: Hypoglycaemia
     Dosage: 3 MG, 1 SPRAY AS NEEDED
     Route: 045
     Dates: start: 20210714
  28. MIRALAX [Concomitant]
     Active Substance: POLYETHYLENE GLYCOL 3350
     Dosage: 17 G,QD, MIX IN 8 OZ OF WATER, JUICE, SODA, COFFEE OR TEA PRIOR TO ADMINISTRATION
     Route: 048
     Dates: start: 20210618
  29. COENZYME Q10 [Concomitant]
     Active Substance: DIETARY SUPPLEMENT\UBIDECARENONE
     Dosage: 1 TABLET,QD
     Route: 048
  30. CARBIDOPA\LEVODOPA [Concomitant]
     Active Substance: CARBIDOPA\LEVODOPA
  31. LOVASTATIN [Concomitant]
     Active Substance: LOVASTATIN
  32. LOSARTAN [Concomitant]
     Active Substance: LOSARTAN
  33. METOPROLOL [Concomitant]
     Active Substance: METOPROLOL
  34. NITROFURANTOIN [Concomitant]
     Active Substance: NITROFURANTOIN
  35. NITROGLYCERIN [Concomitant]
     Active Substance: NITROGLYCERIN
  36. ONDANSETRON [Concomitant]
     Active Substance: ONDANSETRON
  37. PRAMIPEXOLE [Concomitant]
     Active Substance: PRAMIPEXOLE\PRAMIPEXOLE DIHYDROCHLORIDE
  38. TRAMADOL [Concomitant]
     Active Substance: TRAMADOL\TRAMADOL HYDROCHLORIDE

REACTIONS (13)
  - Fatigue [Not Recovered/Not Resolved]
  - Adverse drug reaction [Not Recovered/Not Resolved]
  - Diarrhoea [Recovering/Resolving]
  - Vertigo [Unknown]
  - Dizziness [Unknown]
  - Cystitis [Not Recovered/Not Resolved]
  - Abdominal discomfort [Not Recovered/Not Resolved]
  - Seasonal affective disorder [Not Recovered/Not Resolved]
  - Nausea [Not Recovered/Not Resolved]
  - Fall [Unknown]
  - Hallucination, visual [Not Recovered/Not Resolved]
  - Hallucination [Unknown]
  - Hallucination [Not Recovered/Not Resolved]

NARRATIVE: CASE EVENT DATE: 20220916
